FAERS Safety Report 5767803-2 (Version None)
Quarter: 2008Q2

REPORT INFORMATION
  Report Type: 
  Country: None (occurrence: None)
  Receive Date: 20080612
  Receipt Date: 20080604
  Transmission Date: 20081010
  Serious: Yes (Life-Threatening, Hospitalization, Disabling)
  Sender: FDA-Public Use
  Company Number: FR-TEVA-172420ISR

PATIENT
  Sex: Male
  Weight: 76 kg

DRUGS (7)
  1. FLUOROURACIL [Suspect]
     Indication: GASTRIC CANCER
     Route: 040
     Dates: start: 20080207, end: 20080208
  2. FLUOROURACIL [Suspect]
     Route: 041
     Dates: start: 20080207, end: 20080208
  3. IRINOTECAN HCL [Suspect]
     Indication: GASTRIC CANCER
     Route: 042
     Dates: start: 20080207, end: 20080208
  4. FOLINIC ACID [Suspect]
     Indication: GASTRIC CANCER
     Route: 042
     Dates: start: 20080207, end: 20080208
  5. ATROPINE SULFATE [Concomitant]
     Dates: start: 20080207
  6. METHYLPREDNISOLONE [Concomitant]
     Dates: start: 20080207
  7. ONDANSETRON [Concomitant]
     Dates: start: 20080207

REACTIONS (3)
  - ATRIAL FIBRILLATION [None]
  - CEREBROVASCULAR ACCIDENT [None]
  - PULMONARY EMBOLISM [None]
